FAERS Safety Report 24105432 (Version 2)
Quarter: 2024Q3

REPORT INFORMATION
  Report Type: Spontaneous
  Country: DE (occurrence: DE)
  Receive Date: 20240717
  Receipt Date: 20240812
  Transmission Date: 20241016
  Serious: Yes (Hospitalization, Other)
  Sender: TEIKOKU
  Company Number: DE-HIKMA PHARMACEUTICALS-DE-H14001-24-04741

PATIENT
  Age: 28 Year
  Sex: Female
  Weight: 108 kg

DRUGS (15)
  1. LIDOCAINE [Suspect]
     Active Substance: LIDOCAINE
     Indication: Anaesthesia
     Dosage: UNK
  2. LIDOCAINE [Suspect]
     Active Substance: LIDOCAINE
     Dosage: UNK
     Route: 061
  3. CAFEDRINE HYDROCHLORIDE\THEODRENALINE [Suspect]
     Active Substance: CAFEDRINE HYDROCHLORIDE\THEODRENALINE
     Indication: Blood pressure abnormal
     Dosage: 2 MILLILITRE
  4. CAFEDRINE HYDROCHLORIDE\THEODRENALINE [Suspect]
     Active Substance: CAFEDRINE HYDROCHLORIDE\THEODRENALINE
     Dosage: 2 MILLILITRE
  5. PROPOFOL [Suspect]
     Active Substance: PROPOFOL
     Indication: General anaesthesia
     Dosage: 200 MILLIGRAM
  6. PROPOFOL [Suspect]
     Active Substance: PROPOFOL
     Indication: Anaesthesia
     Dosage: 6 UNK
  7. PROPOFOL [Suspect]
     Active Substance: PROPOFOL
     Dosage: 3 UNK
  8. PROPOFOL [Suspect]
     Active Substance: PROPOFOL
     Dosage: 200 MILLIGRAM
  9. PROPOFOL [Suspect]
     Active Substance: PROPOFOL
     Dosage: 6 UNK
  10. PROPOFOL [Suspect]
     Active Substance: PROPOFOL
     Dosage: 3 UNK
  11. CLINDAMYCIN [Suspect]
     Active Substance: CLINDAMYCIN
     Indication: Perioperative analgesia
     Dosage: 600 MILLIGRAM
     Dates: start: 20240503
  12. ROCURONIUM BROMIDE [Suspect]
     Active Substance: ROCURONIUM BROMIDE
     Indication: Anaesthesia
     Dosage: 50 MILLIGRAM
  13. ROCURONIUM BROMIDE [Suspect]
     Active Substance: ROCURONIUM BROMIDE
     Dosage: 50 MILLIGRAM
  14. SUFENTANIL CITRATE [Suspect]
     Active Substance: SUFENTANIL CITRATE
     Indication: General anaesthesia
     Dosage: 30 MICROGRAM
  15. SUFENTANIL CITRATE [Suspect]
     Active Substance: SUFENTANIL CITRATE
     Indication: Anaesthesia
     Dosage: 30 MICROGRAM

REACTIONS (13)
  - Cardiovascular disorder [Unknown]
  - Swelling face [Unknown]
  - Tryptase decreased [Unknown]
  - Erythema [Unknown]
  - Bronchospasm [Unknown]
  - Angioedema [Unknown]
  - Flushing [Unknown]
  - Blood pressure decreased [Recovered/Resolved]
  - Face oedema [Unknown]
  - Anaphylactic reaction [Unknown]
  - Dyspnoea exertional [Unknown]
  - Metabolic acidosis [Unknown]
  - Dry skin [Unknown]

NARRATIVE: CASE EVENT DATE: 20240503
